FAERS Safety Report 22029134 (Version 1)
Quarter: 2023Q1

REPORT INFORMATION
  Report Type: Spontaneous
  Country: US (occurrence: US)
  Receive Date: 20230223
  Receipt Date: 20230223
  Transmission Date: 20230418
  Serious: No
  Sender: FDA-Public Use
  Company Number: US-BEH-2023155563

PATIENT
  Sex: Female

DRUGS (1)
  1. PRIVIGEN [Suspect]
     Active Substance: HUMAN IMMUNOGLOBULIN G
     Indication: Multiple sclerosis
     Dosage: 30 GRAM, QMT, EVERY 4 WEEKS
     Route: 042
     Dates: start: 202206

REACTIONS (3)
  - Back disorder [Unknown]
  - No adverse event [Unknown]
  - Off label use [Unknown]
